FAERS Safety Report 16736231 (Version 2)
Quarter: 2019Q3

REPORT INFORMATION
  Report Type: Report from Study
  Country: US (occurrence: US)
  Receive Date: 20190823
  Receipt Date: 20190827
  Transmission Date: 20191005
  Serious: No
  Sender: FDA-Public Use
  Company Number: US-SA-2019SA228191

PATIENT
  Age: 74 Year
  Sex: Female

DRUGS (1)
  1. ALIROCUMAB [Suspect]
     Active Substance: ALIROCUMAB
     Indication: ARTERIOSCLEROSIS
     Dosage: 75 MG/ML, QOW
     Route: 058
     Dates: start: 20180801

REACTIONS (3)
  - Memory impairment [Unknown]
  - Injection site pain [Unknown]
  - Confusional state [Unknown]
